FAERS Safety Report 25794560 (Version 1)
Quarter: 2025Q3

REPORT INFORMATION
  Report Type: Report from Study
  Country: US (occurrence: US)
  Receive Date: 20250912
  Receipt Date: 20250912
  Transmission Date: 20251020
  Serious: Yes (Hospitalization)
  Sender: ALEXION PHARMACEUTICALS
  Company Number: US-ASTRAZENECA-202509USA003886US

PATIENT
  Age: 6 Year
  Sex: Male

DRUGS (1)
  1. STRENSIQ [Suspect]
     Active Substance: ASFOTASE ALFA
     Indication: Phosphorus metabolism disorder
     Dosage: 40 MILLIGRAM, TIW, AS DIRECTED
     Route: 065

REACTIONS (2)
  - Influenza [Recovering/Resolving]
  - Hypersensitivity [Unknown]
